FAERS Safety Report 6731363-X (Version None)
Quarter: 2010Q2

REPORT INFORMATION
  Report Type: 
  Country: None (occurrence: None)
  Receive Date: 20100517
  Receipt Date: 20100517
  Transmission Date: 20101027
  Serious: Yes (Other)
  Sender: FDA-Public Use
  Company Number: None

PATIENT
  Age: 58 Year
  Sex: Female
  Weight: 77.1115 kg

DRUGS (4)
  1. RISPERIDONE [Suspect]
     Indication: BIPOLAR DISORDER
     Dosage: 2 MG 1 TAB A DAY PO
     Route: 048
     Dates: start: 20100219, end: 20100226
  2. SEROQUEL [Suspect]
     Indication: BIPOLAR DISORDER
     Dosage: 50 MG 1 TAB A DAY PO
     Route: 048
     Dates: start: 20100423, end: 20100428
  3. ZYPREXA [Concomitant]
  4. .. [Concomitant]

REACTIONS (4)
  - ABNORMAL SENSATION IN EYE [None]
  - DIZZINESS [None]
  - MALAISE [None]
  - MIGRAINE [None]
